FAERS Safety Report 6550900-1 (Version None)
Quarter: 2010Q1

REPORT INFORMATION
  Report Type: 
  Country: None (occurrence: None)
  Receive Date: 20100125
  Receipt Date: 20080514
  Transmission Date: 20100710
  Serious: Yes (Other)
  Sender: FDA-Public Use
  Company Number: PHHY2008ES34102

PATIENT
  Age: 74 Year
  Sex: Male

DRUGS (8)
  1. PANTOPRAZOLE SODIUM [Interacting]
  2. EXELON [Suspect]
     Indication: AMNESIA
     Dosage: UNK
     Dates: start: 19961201
  3. METFORMIN HCL [Interacting]
  4. ADIRO [Interacting]
  5. AXURA [Interacting]
     Dosage: UNK
     Dates: start: 20071201, end: 20080219
  6. CARDYL [Interacting]
  7. NEURONTIN [Interacting]
  8. HUMULIN N [Interacting]

REACTIONS (7)
  - AMNESIA [None]
  - COORDINATION ABNORMAL [None]
  - DISORIENTATION [None]
  - DIZZINESS [None]
  - DRUG INTERACTION [None]
  - INSOMNIA [None]
  - SYNCOPE [None]
